FAERS Safety Report 8276537-4 (Version None)
Quarter: 2012Q2

REPORT INFORMATION
  Report Type: 
  Country: None (occurrence: None)
  Receive Date: 20120412
  Receipt Date: 20120329
  Transmission Date: 20120825
  Serious: Yes (Other)
  Sender: FDA-Public Use
  Company Number: US-VIROPHARMA INCORPORATED-20120315CINRY2746

PATIENT
  Sex: Female
  Weight: 69.462 kg

DRUGS (5)
  1. CHANTIX [Concomitant]
     Indication: EX-TOBACCO USER
     Route: 048
  2. CINRYZE [Suspect]
     Indication: HEREDITARY ANGIOEDEMA
     Dates: start: 20100301
  3. BERINERT [Concomitant]
     Indication: HEREDITARY ANGIOEDEMA
  4. OXANDROLONE [Concomitant]
     Indication: PRODUCT USED FOR UNKNOWN INDICATION
     Route: 065
  5. DANAZOL [Concomitant]
     Indication: HEREDITARY ANGIOEDEMA
     Route: 048

REACTIONS (3)
  - MEDICAL DEVICE COMPLICATION [None]
  - HEREDITARY ANGIOEDEMA [None]
  - CONVULSION [None]
